FAERS Safety Report 15933266 (Version 2)
Quarter: 2020Q4

REPORT INFORMATION
  Report Type: Report from Study
  Country: US (occurrence: US)
  Receive Date: 20190207
  Receipt Date: 20201023
  Transmission Date: 20210113
  Serious: Yes (Hospitalization)
  Sender: FDA-Public Use
  Company Number: US-JNJFOC-20190139599

PATIENT
  Age: 64 Year
  Sex: Male
  Weight: 68.1 kg

DRUGS (3)
  1. DARZALEX [Suspect]
     Active Substance: DARATUMUMAB
     Indication: PLASMA CELL MYELOMA
     Route: 042
     Dates: start: 20190102
  2. GABAPENTIN. [Concomitant]
     Active Substance: GABAPENTIN
     Indication: NEUROPATHY PERIPHERAL
     Route: 065
     Dates: start: 2015
  3. DEXAMETHASONE. [Concomitant]
     Active Substance: DEXAMETHASONE
     Indication: STEROID THERAPY
     Route: 065
     Dates: start: 20190102

REACTIONS (11)
  - Dysuria [Unknown]
  - Gastrointestinal disorder [Unknown]
  - Pyrexia [Recovered/Resolved]
  - Pneumonia [Unknown]
  - Skin infection [Not Recovered/Not Resolved]
  - Infusion related reaction [Recovered/Resolved]
  - Pain [Unknown]
  - Blood pressure increased [Recovered/Resolved]
  - Muscle spasms [Not Recovered/Not Resolved]
  - Cough [Recovered/Resolved]
  - Dyspnoea [Recovered/Resolved]

NARRATIVE: CASE EVENT DATE: 201901
